FAERS Safety Report 6044597-7 (Version None)
Quarter: 2009Q1

REPORT INFORMATION
  Report Type: 
  Country: None (occurrence: None)
  Receive Date: 20090120
  Receipt Date: 20090109
  Transmission Date: 20090719
  Serious: Yes (Hospitalization)
  Sender: FDA-Public Use
  Company Number: US-BIOGENIDEC-2008BI024642

PATIENT
  Age: 40 Year
  Sex: Male
  Weight: 92 kg

DRUGS (12)
  1. TYSABRI [Suspect]
     Indication: CROHN'S DISEASE
     Route: 042
     Dates: start: 20080707, end: 20080707
  2. PREDNISONE [Concomitant]
     Indication: CROHN'S DISEASE
     Route: 048
     Dates: start: 20080513
  3. WELCHOL [Concomitant]
     Indication: HYPERLIPIDAEMIA
     Route: 048
     Dates: start: 20080801
  4. IMODIUM [Concomitant]
     Indication: DIARRHOEA
     Route: 048
     Dates: start: 20040101
  5. LORTAB [Concomitant]
     Indication: ABDOMINAL PAIN
     Route: 048
     Dates: start: 20080601
  6. ZOLOFT [Concomitant]
     Indication: DEPRESSION
     Route: 048
     Dates: start: 20050101
  7. VITRON C [Concomitant]
     Indication: BLOOD IRON DECREASED
     Dates: start: 20080715
  8. VITAMIN D [Concomitant]
     Indication: VITAMIN D DEFICIENCY
     Dates: start: 20071101
  9. CALCIUM [Concomitant]
     Indication: MEDICAL DIET
     Route: 048
     Dates: start: 20071101
  10. FOSAMAX [Concomitant]
     Indication: VITAMIN D DEFICIENCY
     Route: 048
     Dates: start: 20071101
  11. AMBIEN [Concomitant]
     Indication: INSOMNIA
     Route: 048
     Dates: start: 20080801
  12. GAS X [Concomitant]
     Indication: ABDOMINAL DISTENSION
     Route: 048
     Dates: start: 20040101

REACTIONS (2)
  - COLITIS ULCERATIVE [None]
  - RENAL CELL CARCINOMA [None]
